FAERS Safety Report 9540636 (Version 1)
Quarter: 2013Q3

REPORT INFORMATION
  Report Type: Spontaneous
  Country: US (occurrence: US)
  Receive Date: 20130920
  Receipt Date: 20130920
  Transmission Date: 20140515
  Serious: Yes (Other)
  Sender: FDA-Public Use
  Company Number: CHPA2013US014153

PATIENT
  Age: 79 Year
  Sex: Female

DRUGS (3)
  1. GAS-X UNKNOWN [Suspect]
     Dosage: UNK, ONCE/SINGLE
     Route: 048
  2. ARIMIDEX [Concomitant]
     Dosage: UNK
     Dates: end: 201303
  3. BENTYL [Concomitant]

REACTIONS (5)
  - Breast cancer [Unknown]
  - Spinal compression fracture [Unknown]
  - Irritable bowel syndrome [Unknown]
  - Fall [Unknown]
  - Pain [Unknown]
